FAERS Safety Report 11880310 (Version 2)
Quarter: 2016Q1

REPORT INFORMATION
  Report Type: Report from Study
  Country: JP (occurrence: JP)
  Receive Date: 20151230
  Receipt Date: 20160203
  Transmission Date: 20160526
  Serious: No
  Sender: FDA-Public Use
  Company Number: JP-MUNDIPHARMA DS AND PHARMACOVIGILANCE-GBR-2015-0033098

PATIENT
  Age: 83 Year
  Sex: Female
  Weight: 50 kg

DRUGS (10)
  1. BTDS PATCH [Suspect]
     Active Substance: BUPRENORPHINE
     Dosage: 5 MCG, Q1H
     Route: 062
     Dates: start: 20140512, end: 20140526
  2. MICARDIS [Concomitant]
     Active Substance: TELMISARTAN
     Indication: HYPERTENSION
     Dosage: 60 MG, DAILY
     Route: 048
     Dates: start: 20071003, end: 20140911
  3. BTDS PATCH [Suspect]
     Active Substance: BUPRENORPHINE
     Indication: ANALGESIC THERAPY
     Dosage: 10 MCG, Q1H
     Route: 062
     Dates: start: 20140821, end: 20140911
  4. BTDS PATCH [Suspect]
     Active Substance: BUPRENORPHINE
     Dosage: 10 MCG, Q1H
     Route: 062
     Dates: start: 20140526, end: 20140609
  5. MAGLAX [Concomitant]
     Active Substance: MAGNESIUM OXIDE
     Indication: CONSTIPATION
     Dosage: 990 MG, DAILY
     Route: 048
     Dates: start: 20071003, end: 20140901
  6. BTDS PATCH [Suspect]
     Active Substance: BUPRENORPHINE
     Dosage: 20 MCG, Q1H
     Route: 062
     Dates: start: 20140609, end: 20140821
  7. OMEPRAL                            /00661201/ [Concomitant]
     Active Substance: OMEPRAZOLE
     Indication: GASTRIC ULCER
     Dosage: 10 MG, DAILY
     Route: 048
     Dates: start: 20100426, end: 20140911
  8. ADALAT [Concomitant]
     Active Substance: NIFEDIPINE
     Indication: HYPERTENSION
     Dosage: 40 MG, DAILY
     Route: 048
     Dates: start: 20050324, end: 20140911
  9. ELCITONIN [Concomitant]
     Active Substance: ELCATONIN
     Indication: OSTEOPOROSIS
     Dosage: 20 DF, WEEKLY
     Route: 042
     Dates: start: 20071217, end: 20140911
  10. EDIROL [Concomitant]
     Active Substance: ELDECALCITOL
     Indication: OSTEOPOROSIS
     Dosage: 0.75 MCG, DAILY
     Route: 048
     Dates: start: 20100712, end: 20140911

REACTIONS (2)
  - Nausea [Recovered/Resolved]
  - Nausea [Recovered/Resolved]

NARRATIVE: CASE EVENT DATE: 20140517
